FAERS Safety Report 4937503-7 (Version None)
Quarter: 2006Q1

REPORT INFORMATION
  Report Type: 
  Country: None (occurrence: None)
  Receive Date: 20060309
  Receipt Date: 20050825
  Transmission Date: 20060701
  Serious: Yes (Hospitalization)
  Sender: FDA-Public Use
  Company Number: HQWYE129426AUG05

PATIENT
  Sex: Female

DRUGS (21)
  1. ENBREL [Suspect]
     Indication: RHEUMATOID ARTHRITIS
     Route: 058
     Dates: start: 20050531, end: 20050719
  2. RHEUMATREX [Concomitant]
     Dates: start: 20030603
  3. PREDONINE [Concomitant]
     Dates: start: 20030319
  4. TIZANIDINE HCL [Concomitant]
     Dates: start: 20030319
  5. SENNA LEAF [Concomitant]
     Dates: start: 20030319
  6. BROTIZOLAM [Concomitant]
     Dates: start: 20030319
  7. SELBEX [Concomitant]
     Dates: start: 20030319
  8. VOLTAREN [Concomitant]
     Dates: start: 20030319
  9. ETIZOLAM [Concomitant]
     Dates: start: 20030319
  10. AMLODIPINE BESYLATE [Concomitant]
     Dates: start: 20030319
  11. ACHILLEA [Concomitant]
     Dates: start: 20030319
  12. SENNA FRUIT [Concomitant]
     Dates: start: 20030319
  13. SENNA LEAF [Concomitant]
     Dates: start: 20030319
  14. POLARAMINE [Concomitant]
     Dates: start: 20030319
  15. PREDNISOLONE [Concomitant]
  16. FELBINAC [Concomitant]
  17. GENTICIN [Concomitant]
  18. VOLTAREN [Concomitant]
  19. OXICONAZOLE NITRATE [Concomitant]
  20. DALACIN [Concomitant]
  21. UNSPECIFIED TOPICAL PRODUCT [Concomitant]
     Route: 061

REACTIONS (1)
  - OVARIAN CANCER [None]
